FAERS Safety Report 4641595-2 (Version None)
Quarter: 2005Q2

REPORT INFORMATION
  Report Type: 
  Country: None (occurrence: None)
  Receive Date: 20050420
  Receipt Date: 20050401
  Transmission Date: 20051028
  Serious: Yes (Other)
  Sender: FDA-Public Use
  Company Number: B0376636A

PATIENT
  Sex: 0

DRUGS (1)
  1. AUGMENTIN '125' [Suspect]
     Indication: BRONCHITIS ACUTE
     Dosage: THREE TIMES PER DAY ORAL
     Route: 048

REACTIONS (1)
  - ELECTROCARDIOGRAM QT CORRECTED INTERVAL PROLONGED [None]
